FAERS Safety Report 14126408 (Version 1)
Quarter: 2017Q4

REPORT INFORMATION
  Report Type: Spontaneous
  Country: US (occurrence: US)
  Receive Date: 20171025
  Receipt Date: 20171025
  Transmission Date: 20180321
  Serious: Yes (Other)
  Sender: FDA-Public Use
  Company Number: US-BAUSCH-BL-2017-000371

PATIENT
  Age: 5 Year
  Sex: Male

DRUGS (1)
  1. ATIVAN [Suspect]
     Active Substance: LORAZEPAM
     Indication: NUCLEAR MAGNETIC RESONANCE IMAGING
     Dosage: 1 MG AS A SINGLE DOSE
     Route: 048
     Dates: start: 20161230, end: 20161230

REACTIONS (6)
  - Abnormal behaviour [Recovered/Resolved]
  - Crying [Unknown]
  - Off label use [Unknown]
  - Suicidal ideation [Recovered/Resolved]
  - Agitation [Unknown]
  - Aggression [Unknown]

NARRATIVE: CASE EVENT DATE: 20161230
